FAERS Safety Report 5800193-5 (Version None)
Quarter: 2008Q3

REPORT INFORMATION
  Report Type: 
  Country: None (occurrence: None)
  Receive Date: 20080702
  Receipt Date: 20080702
  Transmission Date: 20090109
  Serious: Yes (Other)
  Sender: FDA-Public Use
  Company Number: None

PATIENT
  Age: 75 Year
  Sex: Male
  Weight: 74.8435 kg

DRUGS (1)
  1. DIGITEK AMIDE/BERTEK [Suspect]
     Indication: TACHYCARDIA
     Dosage: TAKE 1 TABLET TWICE A DAY
     Dates: start: 20080105, end: 20080430

REACTIONS (1)
  - CHEST PAIN [None]
